FAERS Safety Report 9782966 (Version 7)
Quarter: 2014Q2

REPORT INFORMATION
  Report Type: Report from Study
  Country: US (occurrence: US)
  Receive Date: 20131226
  Receipt Date: 20140605
  Transmission Date: 20141212
  Serious: Yes (Hospitalization)
  Sender: FDA-Public Use
  Company Number: US-VERTEX PHARMACEUTICALS INC-2013-011781

PATIENT
  Age: 36 Year
  Sex: Male
  Weight: 181 kg

DRUGS (16)
  1. VX-809 FDC [Suspect]
     Indication: CYSTIC FIBROSIS
     Dosage: 600 MG, QAM
     Route: 048
     Dates: start: 20130924, end: 20140131
  2. VX-770 FDC [Suspect]
     Indication: CYSTIC FIBROSIS
     Dosage: 250 MG, QAM
     Route: 048
     Dates: start: 20130924, end: 20140131
  3. VX-770 [Suspect]
     Indication: CYSTIC FIBROSIS
     Dosage: 250 MG, QPM
     Dates: start: 20130924, end: 20140131
  4. COMBIVENT [Concomitant]
     Indication: CYSTIC FIBROSIS
     Dosage: 2 DF, BID, PRN
     Route: 055
     Dates: start: 1998
  5. AZITHROMYCIN [Concomitant]
     Indication: CYSTIC FIBROSIS
     Dosage: 500 MG, MWF
     Route: 048
     Dates: start: 20061130
  6. HUMAN INSULIN [Concomitant]
     Indication: CYSTIC FIBROSIS RELATED DIABETES
     Dosage: 14 IU QAM, 10 IU QPM
     Route: 058
     Dates: start: 2003
  7. CREON [Concomitant]
     Indication: PANCREATIC INSUFFICIENCY
     Dosage: UNK
     Route: 048
     Dates: start: 2010
  8. SYMBICORT [Concomitant]
     Indication: CYSTIC FIBROSIS
     Dosage: 2 DF, BID, PRN
     Route: 055
     Dates: start: 201209
  9. SOURCECF [Concomitant]
     Indication: PANCREATIC INSUFFICIENCY
     Dosage: 1 DF, BID
     Route: 048
     Dates: start: 2010
  10. VITAMIN D [Concomitant]
     Indication: HYPOVITAMINOSIS
     Dosage: 1000 IU, QD
     Route: 048
     Dates: start: 20130603
  11. HYPERTONIC SALINE SOLUTION [Concomitant]
     Indication: CYSTIC FIBROSIS
     Dosage: UNK, BID
     Route: 055
     Dates: start: 20060803
  12. AQUADEKS [Concomitant]
     Dosage: UNK, BID
  13. PULMICORT [Concomitant]
     Dosage: 0.5 MG/2 ML, BID
     Route: 045
  14. INFLUENZA VACCINE [Concomitant]
     Dosage: UNK
     Dates: start: 201310
  15. ALBUTEROL [Concomitant]
  16. MUPIROCIN [Concomitant]

REACTIONS (2)
  - Bronchospasm [Recovered/Resolved]
  - Infective pulmonary exacerbation of cystic fibrosis [Recovered/Resolved]
